FAERS Safety Report 15607030 (Version 1)
Quarter: 2018Q4

REPORT INFORMATION
  Report Type: Spontaneous
  Country: US (occurrence: US)
  Receive Date: 20181106
  Receipt Date: 20181106
  Transmission Date: 20190205
  Serious: No
  Sender: FDA-Public Use
  Company Number: None

PATIENT
  Age: 61 Year
  Sex: Female

DRUGS (1)
  1. GLATIRAMER ACETATE 40 MG/ML [Suspect]
     Active Substance: GLATIRAMER ACETATE
     Indication: MULTIPLE SCLEROSIS
     Dosage: ONE SYRINGE (40MG) 3TIMES WEEKLY SUBCUTANEOUSLY
     Route: 058
     Dates: start: 20180424

REACTIONS (1)
  - Dizziness [None]

NARRATIVE: CASE EVENT DATE: 20181031
